FAERS Safety Report 6640491-9 (Version None)
Quarter: 2010Q1

REPORT INFORMATION
  Report Type: 
  Country: None (occurrence: None)
  Receive Date: 20100318
  Receipt Date: 20100308
  Transmission Date: 20100710
  Serious: Yes (Hospitalization)
  Sender: FDA-Public Use
  Company Number: IT-PFIZER INC-2010007077

PATIENT
  Age: 25 Year
  Sex: Female

DRUGS (3)
  1. ZYVOXID [Suspect]
     Indication: TUBERCULOSIS
     Dosage: 1200 MG DAILY
     Route: 048
     Dates: start: 20091101, end: 20091201
  2. AVELOX [Concomitant]
     Indication: TUBERCULOSIS
     Dosage: 400 MG
     Route: 048
     Dates: start: 20091101, end: 20091201
  3. ETAPIAM [Concomitant]
     Indication: TUBERCULOSIS
     Dosage: 1200 MG
     Route: 048
     Dates: start: 20091101, end: 20091201

REACTIONS (3)
  - ANAEMIA [None]
  - ASTHENIA [None]
  - LEUKOPENIA [None]
